FAERS Safety Report 12580241 (Version 1)
Quarter: 2016Q3

REPORT INFORMATION
  Report Type: Spontaneous
  Country: DE (occurrence: DE)
  Receive Date: 20160721
  Receipt Date: 20160721
  Transmission Date: 20161109
  Serious: Yes (Other)
  Sender: FDA-Public Use
  Company Number: DE-SHIRE-DE201608754

PATIENT
  Age: 13 Year

DRUGS (1)
  1. ELVANSE [Suspect]
     Active Substance: LISDEXAMFETAMINE DIMESYLATE
     Indication: PRODUCT USED FOR UNKNOWN INDICATION
     Dosage: UNK UNK, UNKNOWN
     Route: 048

REACTIONS (7)
  - Visual impairment [Unknown]
  - Inappropriate affect [Unknown]
  - Tachycardia [Unknown]
  - Failure to thrive [Unknown]
  - Cartilage hypertrophy [Unknown]
  - Exercise tolerance decreased [Unknown]
  - Joint crepitation [Unknown]
